FAERS Safety Report 4478324-1 (Version None)
Quarter: 2004Q3

REPORT INFORMATION
  Report Type: 
  Country: None (occurrence: None)
  Receive Date: 20040923
  Receipt Date: 20040726
  Transmission Date: 20050211
  Serious: No
  Sender: FDA-Public Use
  Company Number: USA040773595

PATIENT
  Age: 73 Year
  Sex: Female
  Weight: 72 kg

DRUGS (5)
  1. FORTEO [Suspect]
     Indication: OSTEOPOROSIS
     Dosage: 20 UG/1 DAY
     Dates: start: 20040601, end: 20040714
  2. EVISTA [Suspect]
     Indication: BONE DISORDER
  3. EVISTA [Suspect]
     Indication: CARDIAC DISORDER
  4. EVISTA [Suspect]
     Indication: MENOPAUSAL SYMPTOMS
  5. EVISTA [Suspect]
     Indication: PROPHYLAXIS

REACTIONS (6)
  - ASTHENIA [None]
  - INJECTION SITE PAIN [None]
  - MUSCLE CRAMP [None]
  - PAIN [None]
  - PAIN IN EXTREMITY [None]
  - WEIGHT INCREASED [None]
